FAERS Safety Report 14346851 (Version 1)
Quarter: 2018Q1

REPORT INFORMATION
  Report Type: Spontaneous
  Country: US (occurrence: US)
  Receive Date: 20180103
  Receipt Date: 20180103
  Transmission Date: 20180509
  Serious: No
  Sender: FDA-Public Use
  Company Number: US-PFIZER INC-2018000246

PATIENT
  Age: 59 Year
  Sex: Female
  Weight: 55.34 kg

DRUGS (3)
  1. LEVOTHYROXINE. [Concomitant]
     Active Substance: LEVOTHYROXINE
     Indication: THYROID DISORDER
     Dosage: 137 UG, 1X/DAY(137MCG THROUGH G-TUBE ONCE PER DAY)
  2. XALKORI [Suspect]
     Active Substance: CRIZOTINIB
     Indication: HEAD AND NECK CANCER
     Dosage: 200 MG, 2X/DAY (200MG CAPSULE DISSOLVED AND POURED INTO G-TUBE TWICE PER DAY)
     Dates: start: 201711, end: 201712
  3. LISINOPRIL. [Concomitant]
     Active Substance: LISINOPRIL
     Indication: BLOOD PRESSURE ABNORMAL
     Dosage: 10 MG, 1X/DAY (10MG THROUGH G-TUBE ONCE PER DAY)

REACTIONS (6)
  - Swelling face [Recovered/Resolved]
  - Peripheral swelling [Not Recovered/Not Resolved]
  - Wrong technique in product usage process [Unknown]
  - Pharyngeal oedema [Recovered/Resolved]
  - Product use in unapproved indication [Unknown]
  - Neoplasm progression [Unknown]

NARRATIVE: CASE EVENT DATE: 201712
